FAERS Safety Report 7247541-X (Version None)
Quarter: 2011Q1

REPORT INFORMATION
  Report Type: 
  Country: None (occurrence: None)
  Receive Date: 20110127
  Receipt Date: 20110115
  Transmission Date: 20110831
  Serious: Yes (Other)
  Sender: FDA-Public Use
  Company Number: PHHY2011US04317

PATIENT
  Age: 50 Year
  Sex: Female

DRUGS (5)
  1. TIMOLOL [Concomitant]
     Indication: OPEN ANGLE GLAUCOMA
     Dosage: BID
  2. BETAMETHASONE [Concomitant]
     Dosage: 3 MG, UNK
  3. METHYLPREDNISOLONE [Suspect]
     Dosage: 60 MG, UNK
     Route: 042
  4. METHYLPREDNISOLONE [Suspect]
     Dosage: 1 G, QD
     Route: 042
  5. PREDNISOLONE ACETATE [Concomitant]
     Dosage: HOURLY

REACTIONS (4)
  - INTRAOCULAR PRESSURE INCREASED [None]
  - UVEITIS [None]
  - EYE INFLAMMATION [None]
  - HYPOPYON [None]
